FAERS Safety Report 15299934 (Version 1)
Quarter: 2018Q3

REPORT INFORMATION
  Report Type: Spontaneous
  Country: US (occurrence: US)
  Receive Date: 20180808
  Receipt Date: 20180808
  Transmission Date: 20181010
  Serious: Yes (Disabling)
  Sender: FDA-Public Use
  Company Number: None

PATIENT
  Age: 76 Year
  Sex: Female
  Weight: 76.5 kg

DRUGS (7)
  1. VITAMIN D3 [Concomitant]
     Active Substance: CHOLECALCIFEROL
  2. NO DRUG NAME [Concomitant]
  3. CIPRO [Suspect]
     Active Substance: CIPROFLOXACIN HYDROCHLORIDE
     Indication: PNEUMONIA
     Route: 048
  4. ATENOLOL. [Concomitant]
     Active Substance: ATENOLOL
  5. LOSARTIN [Concomitant]
     Active Substance: LOSARTAN
  6. HCTZ [Concomitant]
     Active Substance: HYDROCHLOROTHIAZIDE
  7. LEVAQUIN [Suspect]
     Active Substance: LEVOFLOXACIN
     Indication: PNEUMONIA

REACTIONS (9)
  - Mobility decreased [None]
  - Hypoaesthesia [None]
  - Joint stiffness [None]
  - Balance disorder [None]
  - Neuropathy peripheral [None]
  - Condition aggravated [None]
  - Drug hypersensitivity [None]
  - Paraesthesia [None]
  - Pneumonia [None]

NARRATIVE: CASE EVENT DATE: 20040615
